FAERS Safety Report 7056028-9 (Version None)
Quarter: 2010Q4

REPORT INFORMATION
  Report Type: 
  Country: None (occurrence: None)
  Receive Date: 20101021
  Receipt Date: 20101007
  Transmission Date: 20110411
  Serious: Yes (Hospitalization)
  Sender: FDA-Public Use
  Company Number: B0229314A

PATIENT
  Sex: Female
  Weight: 60 kg

DRUGS (2)
  1. PAROXETINE HCL [Suspect]
     Indication: DEPRESSION
     Dosage: 10MG PER DAY
     Route: 048
     Dates: start: 19991101, end: 19991108
  2. CENTYL MITE MED KALIUMKLORID [Concomitant]
     Dates: start: 19991008, end: 19991108

REACTIONS (4)
  - DRUG INTERACTION [None]
  - HYPONATRAEMIA [None]
  - NAUSEA [None]
  - VOMITING [None]
